FAERS Safety Report 4802443-0 (Version None)
Quarter: 2005Q4

REPORT INFORMATION
  Report Type: 
  Country: None (occurrence: None)
  Receive Date: 20051014
  Receipt Date: 20050114
  Transmission Date: 20060501
  Serious: Yes (Other)
  Sender: FDA-Public Use
  Company Number: 2004082346

PATIENT
  Sex: Female

DRUGS (3)
  1. NEURONTIN [Suspect]
     Indication: HEADACHE
     Dosage: 600 MG (30 MG, 2 IN 1 D)
     Dates: start: 20040101, end: 20040501
  2. CITALOPRAM HYDROBROMIDE [Suspect]
     Indication: ILL-DEFINED DISORDER
  3. ALL OTHER THERAPEUTIC PRODUCTS (ALL OTHER THERAPEUTIC PRODUCTS) [Suspect]
     Indication: ILL-DEFINED DISORDER

REACTIONS (8)
  - ANGINA PECTORIS [None]
  - ASTHENOPIA [None]
  - BLINDNESS [None]
  - DRUG INEFFECTIVE [None]
  - HYPERTENSION [None]
  - MALABSORPTION [None]
  - MIGRAINE [None]
  - POST GASTRIC SURGERY SYNDROME [None]
